FAERS Safety Report 6867368-8 (Version None)
Quarter: 2010Q2

REPORT INFORMATION
  Report Type: 
  Country: None (occurrence: None)
  Receive Date: 20100528
  Receipt Date: 20100210
  Transmission Date: 20101027
  Serious: No
  Sender: FDA-Public Use
  Company Number: 2010019115

PATIENT
  Age: 80 Year
  Sex: Female
  Weight: 73.5 kg

DRUGS (6)
  1. TOVIAZ [Suspect]
     Indication: HYPERTONIC BLADDER
     Dosage: 8 MG, 1X/DAY
     Dates: start: 20100201
  2. PROPRANOLOL [Concomitant]
  3. PRIMIDONE [Concomitant]
  4. SUDAFED (PSEUDOEPHEDRINE HYDROCHLOIRDE) [Concomitant]
  5. LEXAPRO [Concomitant]
  6. COATED ASPIRIN (ACETYLSALICYLIC ACID) [Concomitant]

REACTIONS (2)
  - DIZZINESS [None]
  - SOMNOLENCE [None]
